FAERS Safety Report 16115326 (Version 3)
Quarter: 2019Q3

REPORT INFORMATION
  Report Type: Spontaneous
  Country: US (occurrence: US)
  Receive Date: 20190325
  Receipt Date: 20190705
  Transmission Date: 20191004
  Serious: No
  Sender: FDA-Public Use
  Company Number: US-PFIZER INC-2019117352

PATIENT
  Age: 74 Year
  Sex: Male
  Weight: 88 kg

DRUGS (6)
  1. ZYRTEC [Concomitant]
     Active Substance: CETIRIZINE HYDROCHLORIDE
     Indication: PARANASAL SINUS HYPERSECRETION
     Dosage: 10 MG, DAILY
     Route: 048
     Dates: end: 2019
  2. ZYRTEC [Concomitant]
     Active Substance: CETIRIZINE HYDROCHLORIDE
     Dosage: 10 MG, ALTERNATE DAY (EVERY OTHER DAY )
     Route: 048
     Dates: start: 2019
  3. SOTALOL. [Concomitant]
     Active Substance: SOTALOL
     Indication: ARRHYTHMIA
     Dosage: 80 MG, 3X/DAY
  4. FLOMAX [Concomitant]
     Active Substance: TAMSULOSIN HYDROCHLORIDE
     Dosage: UNK
  5. ADVIL [Suspect]
     Active Substance: IBUPROFEN
     Indication: PAIN
     Dosage: 200 MG, UNK (SIX TIMES A DAY)
     Route: 048
     Dates: start: 20190211
  6. ADVIL [Suspect]
     Active Substance: IBUPROFEN
     Dosage: 200 MG, UNK (SIX TIMES A DAY)
     Route: 048
     Dates: end: 2019

REACTIONS (4)
  - Incorrect product administration duration [Unknown]
  - Product use complaint [Unknown]
  - Joint swelling [Unknown]
  - Peripheral swelling [Recovering/Resolving]

NARRATIVE: CASE EVENT DATE: 2019
